FAERS Safety Report 23113693 (Version 2)
Quarter: 2024Q1

REPORT INFORMATION
  Report Type: Spontaneous
  Country: JP (occurrence: JP)
  Receive Date: 20231027
  Receipt Date: 20240207
  Transmission Date: 20240410
  Serious: Yes (Other)
  Sender: FDA-Public Use
  Company Number: JP-BRISTOL-MYERS SQUIBB COMPANY-2023-152270

PATIENT

DRUGS (4)
  1. YERVOY [Suspect]
     Active Substance: IPILIMUMAB
     Indication: Pleural mesothelioma malignant
  2. YERVOY [Suspect]
     Active Substance: IPILIMUMAB
     Indication: Peritoneal mesothelioma malignant
  3. OPDIVO [Suspect]
     Active Substance: NIVOLUMAB
     Indication: Pleural mesothelioma malignant
  4. OPDIVO [Suspect]
     Active Substance: NIVOLUMAB
     Indication: Peritoneal mesothelioma malignant

REACTIONS (1)
  - Cytokine release syndrome [Unknown]
